FAERS Safety Report 9142830 (Version 2)
Quarter: 2014Q1

REPORT INFORMATION
  Report Type: Spontaneous
  Country: US (occurrence: US)
  Receive Date: 20130306
  Receipt Date: 20140129
  Transmission Date: 20141002
  Serious: Yes (Hospitalization, Other)
  Sender: FDA-Public Use
  Company Number: US-BAYER-2013-028086

PATIENT
  Age: 35 Year
  Sex: Female

DRUGS (5)
  1. YAZ [Suspect]
     Dosage: UNK
     Dates: start: 20090312, end: 20100309
  2. OCELLA [Suspect]
     Dosage: UNK
     Dates: start: 20090312, end: 20100309
  3. LEVOTHYROXINE [Concomitant]
     Dosage: 1000 ?G, UNK
     Route: 048
     Dates: start: 20090801
  4. IBUPROFEN [Concomitant]
     Dosage: 800 MG, UNK
     Route: 048
     Dates: start: 20090920
  5. BUPROPION [Concomitant]
     Dosage: UNK
     Route: 048
     Dates: start: 20091122

REACTIONS (7)
  - Gallbladder disorder [None]
  - Cholecystitis acute [None]
  - Injury [None]
  - Pain [None]
  - Emotional distress [None]
  - Anxiety [None]
  - Psychological trauma [None]
